FAERS Safety Report 8934030 (Version 2)
Quarter: 2014Q2

REPORT INFORMATION
  Report Type: Spontaneous
  Country: IT (occurrence: IT)
  Receive Date: 20121129
  Receipt Date: 20131120
  Transmission Date: 20141212
  Serious: Yes (Hospitalization)
  Sender: FDA-Public Use
  Company Number: IT-TEVA-371571ISR

PATIENT
  Age: 54 Year
  Sex: Female

DRUGS (6)
  1. CARBOPLATINO TEVA [Suspect]
     Indication: NEOPLASM MALIGNANT
     Route: 042
     Dates: start: 20120612, end: 20120612
  2. ANZATAX [Suspect]
     Indication: NEOPLASM MALIGNANT
     Dosage: 150 MG TOTAL
     Route: 042
     Dates: start: 20120612, end: 20120612
  3. LANSOX [Concomitant]
     Dosage: HARD CAPSULES
     Dates: start: 20110406, end: 20120629
  4. FRAGMIN [Concomitant]
     Dates: start: 20120613, end: 20120629
  5. LYRICA [Concomitant]
     Dates: start: 20120504, end: 20120629
  6. DIFLUCAN [Concomitant]
     Dates: start: 20120613, end: 20120629

REACTIONS (5)
  - Thrombocytopenia [Recovering/Resolving]
  - Anaemia [Recovering/Resolving]
  - Tachycardia [Recovering/Resolving]
  - Vomiting [Recovering/Resolving]
  - Nausea [Recovering/Resolving]
